FAERS Safety Report 4666972-5 (Version None)
Quarter: 2005Q2

REPORT INFORMATION
  Report Type: 
  Country: None (occurrence: None)
  Receive Date: 20050516
  Receipt Date: 20040818
  Transmission Date: 20051028
  Serious: Yes (Hospitalization)
  Sender: FDA-Public Use
  Company Number: APP200400696

PATIENT
  Age: 86 Year
  Sex: Female

DRUGS (2)
  1. VANCOMYCIN HYDROCHLORIDE [Suspect]
     Indication: KNEE ARTHROPLASTY
     Dosage: EXACT DOSAGE AND SCHEDULE WERE NOT KNOWN, INTRAVENOUS
     Route: 042
     Dates: start: 20040601, end: 20040719
  2. VANCOMYCIN HYDROCHLORIDE [Suspect]
     Indication: POSTOPERATIVE INFECTION
     Dosage: EXACT DOSAGE AND SCHEDULE WERE NOT KNOWN, INTRAVENOUS
     Route: 042
     Dates: start: 20040601, end: 20040719

REACTIONS (4)
  - CONFUSIONAL STATE [None]
  - DERMATITIS EXFOLIATIVE [None]
  - HYPOTENSION [None]
  - VOMITING [None]
